FAERS Safety Report 20362511 (Version 1)
Quarter: 2022Q1

REPORT INFORMATION
  Report Type: Spontaneous
  Country: US (occurrence: None)
  Receive Date: 20220120
  Receipt Date: 20220120
  Transmission Date: 20220423
  Serious: Yes (Life-Threatening, Hospitalization)
  Sender: FDA-Public Use
  Company Number: None

PATIENT
  Age: 59 Year
  Sex: Female
  Weight: 179.5 kg

DRUGS (1)
  1. ISOVUE 370 [Suspect]
     Active Substance: IOPAMIDOL
     Indication: Imaging procedure
     Dosage: FREQUENCY : ONCE;?
     Route: 042
     Dates: start: 20220118, end: 20220118

REACTIONS (4)
  - Unresponsive to stimuli [None]
  - Oral discharge [None]
  - Hypotension [None]
  - Cardio-respiratory arrest [None]

NARRATIVE: CASE EVENT DATE: 20220118
